FAERS Safety Report 9296788 (Version 2)
Quarter: 2013Q2

REPORT INFORMATION
  Report Type: Report from Study
  Country: US (occurrence: US)
  Receive Date: 20130517
  Receipt Date: 20130618
  Transmission Date: 20140414
  Serious: Yes (Hospitalization)
  Sender: FDA-Public Use
  Company Number: US-VERTEX PHARMACEUTICALS INC-2013-006077

PATIENT
  Age: 47 Year
  Sex: Female

DRUGS (2)
  1. VX-770 [Suspect]
     Indication: CYSTIC FIBROSIS
     Dosage: 150 MG, BID
     Route: 048
     Dates: start: 20130409, end: 20130410
  2. VX-770 [Suspect]
     Dosage: 300 MG, QW
     Route: 048
     Dates: start: 20130410

REACTIONS (1)
  - Infective pulmonary exacerbation of cystic fibrosis [Unknown]
